FAERS Safety Report 13366701 (Version 1)
Quarter: 2017Q1

REPORT INFORMATION
  Report Type: Spontaneous
  Country: TR (occurrence: TR)
  Receive Date: 20170323
  Receipt Date: 20170323
  Transmission Date: 20170429
  Serious: Yes (Other)
  Sender: FDA-Public Use
  Company Number: TR-AMGEN-TURSP2017044534

PATIENT
  Age: 57 Year
  Sex: Female

DRUGS (4)
  1. SALAZOPYRIN [Concomitant]
     Active Substance: SULFASALAZINE
  2. INH [Concomitant]
     Active Substance: ISONIAZID
  3. PREDNOL [Concomitant]
     Active Substance: METHYLPREDNISOLONE
  4. ENBREL [Suspect]
     Active Substance: ETANERCEPT
     Indication: ANKYLOSING SPONDYLITIS
     Dosage: 50 MG, WEEKLY
     Route: 058
     Dates: start: 20161110, end: 20170309

REACTIONS (2)
  - Fall [Recovering/Resolving]
  - Wrist fracture [Recovering/Resolving]

NARRATIVE: CASE EVENT DATE: 20170311
